FAERS Safety Report 7005173-2 (Version None)
Quarter: 2010Q3

REPORT INFORMATION
  Report Type: 
  Country: None (occurrence: None)
  Receive Date: 20100920
  Receipt Date: 20100920
  Transmission Date: 20110219
  Serious: No
  Sender: FDA-Public Use
  Company Number: None

PATIENT
  Age: 55 Year
  Sex: Male
  Weight: 92.99 kg

DRUGS (1)
  1. NIFEDIPINE [Suspect]
     Dosage: 120 MG EVERY DAY PO
     Route: 048
     Dates: start: 20091009, end: 20100302

REACTIONS (1)
  - GINGIVAL HYPERPLASIA [None]
